FAERS Safety Report 6355230-9 (Version None)
Quarter: 2009Q3

REPORT INFORMATION
  Report Type: 
  Country: None (occurrence: None)
  Receive Date: 20090817
  Receipt Date: 20080617
  Transmission Date: 20100115
  Serious: No
  Sender: FDA-Public Use
  Company Number: 20084830

PATIENT
  Sex: Female

DRUGS (1)
  1. LIORESAL [Suspect]
     Indication: MUSCLE SPASTICITY
     Dosage: 100 MCG, DAILY, INTRATHECAL
     Route: 037

REACTIONS (3)
  - HYPERTONIA [None]
  - PAIN [None]
  - WITHDRAWAL SYNDROME [None]
